FAERS Safety Report 9865086 (Version 1)
Quarter: 2014Q1

REPORT INFORMATION
  Report Type: Spontaneous
  Country: US (occurrence: US)
  Receive Date: 20140203
  Receipt Date: 20140203
  Transmission Date: 20141002
  Serious: No
  Sender: FDA-Public Use
  Company Number: US-AMGEN-USASP2014005224

PATIENT
  Age: 47 Year
  Sex: Male

DRUGS (1)
  1. ENBREL [Suspect]
     Indication: PSORIATIC ARTHROPATHY
     Dosage: 5 MG, QWK
     Route: 065
     Dates: start: 20110203, end: 20140113

REACTIONS (2)
  - Influenza [Not Recovered/Not Resolved]
  - Injection site pain [Unknown]
